FAERS Safety Report 8446064-X (Version None)
Quarter: 2012Q2

REPORT INFORMATION
  Report Type: 
  Country: None (occurrence: None)
  Receive Date: 20120323
  Receipt Date: 20110915
  Transmission Date: 20120825
  Serious: Yes (Other)
  Sender: FDA-Public Use
  Company Number: 163-21880-11063879

PATIENT
  Age: 68 Year
  Sex: Male
  Weight: 52.2544 kg

DRUGS (20)
  1. NEXIUM [Concomitant]
  2. ZOFRAN [Concomitant]
  3. REVLIMID [Suspect]
     Indication: MULTIPLE MYELOMA
     Dosage: 25 MG, DAILY X 14 THEN OFF 7, PO
     Route: 048
     Dates: start: 20110531
  4. BORTEZOMIB [Concomitant]
  5. PROCHLORPERAZINE MELEATE (PROCHLORPERAZINE MALEATE) [Concomitant]
  6. ASPIRIN [Concomitant]
  7. BENAZEPRIL-HYDROCHLOROTHIAZIDE (ALL OTHER THERAPEUTIC PRODUCTS) [Concomitant]
  8. ZANAFLEX [Concomitant]
  9. DIOVAN [Concomitant]
  10. METOPROLOL TARTRATE [Concomitant]
  11. IMODIUM A-D [Concomitant]
  12. PROCARDIA XL [Concomitant]
  13. PLAVIX [Concomitant]
  14. SODIUM CHLORIDE 0.9% [Concomitant]
  15. SYNTHROID [Concomitant]
  16. MAGIC SWIZZLE (ALL OTHER THERAPEUTIC PRODUCTS) [Concomitant]
  17. DEXAMETHASONE [Concomitant]
  18. KYTRIL [Concomitant]
  19. CRESTOR [Concomitant]
  20. LORTAB [Concomitant]

REACTIONS (1)
  - RASH GENERALISED [None]
